FAERS Safety Report 17631456 (Version 1)
Quarter: 2020Q2

REPORT INFORMATION
  Report Type: Spontaneous
  Country: JP (occurrence: JP)
  Receive Date: 20200406
  Receipt Date: 20200406
  Transmission Date: 20200713
  Serious: Yes (Hospitalization)
  Sender: FDA-Public Use
  Company Number: JP-UNICHEM PHARMACEUTICALS (USA) INC-UCM202003-000423

PATIENT
  Age: 80 Year
  Sex: Female
  Weight: 52.2 kg

DRUGS (6)
  1. HEPARIN SODIUM. [Concomitant]
     Active Substance: HEPARIN SODIUM
     Indication: HEMIPARESIS
  2. EDARAVONE [Concomitant]
     Active Substance: EDARAVONE
     Indication: HEMIPARESIS
  3. DONEPEZIL. [Suspect]
     Active Substance: DONEPEZIL
     Indication: DEMENTIA ALZHEIMER^S TYPE
     Dosage: ON 16TH DAY
  4. APIXABAN [Concomitant]
     Active Substance: APIXABAN
     Indication: CEREBRAL INFARCTION
  5. DONEPEZIL. [Suspect]
     Active Substance: DONEPEZIL
     Dosage: ON 24TH DAY
  6. AMANTADINE. [Suspect]
     Active Substance: AMANTADINE HYDROCHLORIDE
     Indication: MOVEMENT DISORDER

REACTIONS (8)
  - Dyskinesia [Recovered/Resolved]
  - Hypertonia [Recovered/Resolved]
  - Tremor [Recovered/Resolved]
  - Drug interaction [Recovered/Resolved]
  - Pyrexia [Recovered/Resolved]
  - Tachycardia [Recovered/Resolved]
  - Musculoskeletal stiffness [Recovered/Resolved]
  - Toxicity to various agents [Recovered/Resolved]
